FAERS Safety Report 5632541-3 (Version None)
Quarter: 2008Q1

REPORT INFORMATION
  Report Type: 
  Country: None (occurrence: None)
  Receive Date: 20080131
  Receipt Date: 20071011
  Transmission Date: 20080703
  Serious: No
  Sender: FDA-Public Use
  Company Number: 163-21880-07100651

PATIENT
  Age: 53 Year
  Sex: Male

DRUGS (2)
  1. REVLIMID [Suspect]
     Indication: MULTIPLE MYELOMA
     Dosage: 10, 25 MG, TWO CAPSULES DAILY ON DAYS 1 THRU 21, ORAL
     Route: 048
     Dates: start: 20070314, end: 20070601
  2. REVLIMID [Suspect]
     Indication: MULTIPLE MYELOMA
     Dosage: 10, 25 MG, TWO CAPSULES DAILY ON DAYS 1 THRU 21, ORAL
     Route: 048
     Dates: start: 20070625

REACTIONS (1)
  - HYPERHIDROSIS [None]
